FAERS Safety Report 13121478 (Version 1)
Quarter: 2017Q1

REPORT INFORMATION
  Report Type: Other
  Country: US (occurrence: US)
  Receive Date: 20170117
  Receipt Date: 20170117
  Transmission Date: 20170428
  Serious: No
  Sender: FDA-Public Use
  Company Number: US-SHIRE-US201619559

PATIENT
  Age: 35 Year
  Sex: Female

DRUGS (1)
  1. NATPARA (PARATHYROID HORMONE) [Suspect]
     Active Substance: PARATHYROID HORMONE
     Indication: HYPOPARATHYROIDISM
     Dosage: 75 ?G, UNKNOWN
     Route: 058
     Dates: start: 20161009

REACTIONS (8)
  - Wheezing [Unknown]
  - Confusional state [Unknown]
  - Bone pain [Unknown]
  - Headache [Unknown]
  - Paraesthesia oral [Unknown]
  - Migraine [Recovering/Resolving]
  - Abdominal discomfort [Unknown]
  - Asthenia [Unknown]

NARRATIVE: CASE EVENT DATE: 20161213
